FAERS Safety Report 8885742 (Version 5)
Quarter: 2020Q1

REPORT INFORMATION
  Report Type: Spontaneous
  Country: US (occurrence: US)
  Receive Date: 20121101
  Receipt Date: 20200313
  Transmission Date: 20200409
  Serious: No
  Sender: FDA-Public Use
  Company Number: US-PFIZER INC-2012268441

PATIENT
  Age: 49 Year
  Sex: Female

DRUGS (2)
  1. ARTHROTEC [Suspect]
     Active Substance: DICLOFENAC SODIUM\MISOPROSTOL
     Dosage: UNK (MISOPROSTOL: 200 MCG ; DICLOFENAC SODIUM: 75 MG)
  2. ARTHROTEC [Suspect]
     Active Substance: DICLOFENAC SODIUM\MISOPROSTOL
     Indication: RHEUMATOID ARTHRITIS
     Dosage: UNK UNK, 1X/DAY (75MG/200MCG)
     Route: 048

REACTIONS (1)
  - Nasopharyngitis [Unknown]
